FAERS Safety Report 5934589-8 (Version None)
Quarter: 2008Q4

REPORT INFORMATION
  Report Type: 
  Country: None (occurrence: None)
  Receive Date: 20081027
  Receipt Date: 20081019
  Transmission Date: 20090506
  Serious: Yes (Other)
  Sender: FDA-Public Use
  Company Number: CHPA2008US18114

PATIENT
  Age: 64 Year
  Sex: Female

DRUGS (1)
  1. MAALOX ANTIACID/ANTIGAS MAX STR MULTI SYMPTOM (NCH)(MAGNESIUM HYDROXID [Suspect]
     Indication: HYPERCHLORHYDRIA
     Dosage: 3 TSP, QHS, ORAL
     Route: 048
     Dates: start: 20081018

REACTIONS (3)
  - CARDIAC VALVE DISEASE [None]
  - DEPRESSION [None]
  - DIARRHOEA [None]
